FAERS Safety Report 7673910-X (Version None)
Quarter: 2011Q3

REPORT INFORMATION
  Report Type: 
  Country: None (occurrence: None)
  Receive Date: 20110810
  Receipt Date: 20110404
  Transmission Date: 20111222
  Serious: No
  Sender: FDA-Public Use
  Company Number: US-GLAXOSMITHKLINE-A0921304A

PATIENT
  Age: 78 Year
  Sex: Female

DRUGS (2)
  1. PAXIL [Suspect]
     Indication: DEPRESSION
     Dosage: 10MG PER DAY
     Route: 048
     Dates: start: 20020101, end: 20110402
  2. FOSAMAX [Concomitant]

REACTIONS (6)
  - CONSTIPATION [None]
  - DIZZINESS [None]
  - DRY MOUTH [None]
  - DRUG INEFFECTIVE [None]
  - WEIGHT DECREASED [None]
  - NAUSEA [None]
